FAERS Safety Report 6135936-7 (Version None)
Quarter: 2009Q1

REPORT INFORMATION
  Report Type: 
  Country: None (occurrence: None)
  Receive Date: 20090329
  Receipt Date: 20080404
  Transmission Date: 20090719
  Serious: No
  Sender: FDA-Public Use
  Company Number: US-BAUSCH-2008BL001941

PATIENT
  Age: 87 Year
  Sex: Female

DRUGS (7)
  1. TIMOLOL MALEATE [Suspect]
     Indication: GLAUCOMA
     Route: 047
     Dates: start: 20080317, end: 20080331
  2. TRUSOPT /GFR/ [Concomitant]
     Indication: GLAUCOMA
     Route: 047
     Dates: start: 19940101
  3. XALATAN /SWE/ [Concomitant]
     Indication: GLAUCOMA
     Route: 047
     Dates: start: 19940101
  4. BENICAR /USA/ [Concomitant]
     Indication: HYPERTENSION
     Route: 048
     Dates: start: 20050101
  5. VITAMIN D3 [Concomitant]
     Indication: BLOOD PARATHYROID HORMONE INCREASED
     Route: 048
     Dates: start: 20050101
  6. PHENOBARBITAL [Concomitant]
     Indication: BRAIN OPERATION
     Route: 048
     Dates: start: 19760101
  7. TYLENOL /USA/ [Concomitant]
     Indication: ARTHRITIS
     Route: 048

REACTIONS (9)
  - ARTHRALGIA [None]
  - BACK PAIN [None]
  - CHEST PAIN [None]
  - INCREASED APPETITE [None]
  - INSOMNIA [None]
  - NIGHT SWEATS [None]
  - PERIPHERAL COLDNESS [None]
  - POLLAKIURIA [None]
  - WEIGHT INCREASED [None]
